FAERS Safety Report 8843676 (Version 1)
Quarter: 2012Q4

REPORT INFORMATION
  Report Type: 
  Country: US (occurrence: US)
  Receive Date: 20121016
  Receipt Date: 20121016
  Transmission Date: 20130627
  Serious: Yes (Hospitalization, Disabling, Other)
  Sender: FDA-Public Use
  Company Number: US-009507513-0804USA03106

PATIENT

DRUGS (9)
  1. FOSAMAX [Suspect]
     Indication: OSTEOPOROSIS
     Dosage: 70 mg, QW
     Route: 048
     Dates: start: 20020513, end: 200708
  2. FOSAMAX [Suspect]
     Indication: OSTEOPENIA
     Dates: start: 2006, end: 2007
  3. NEXIUM [Concomitant]
  4. PIROXICAM [Concomitant]
  5. FORTEO [Concomitant]
  6. PRILOSEC [Concomitant]
  7. DARVOCET-N [Concomitant]
  8. DIOVAN [Concomitant]
  9. PLAVIX [Concomitant]

REACTIONS (69)
  - Femur fracture [Not Recovered/Not Resolved]
  - Femur fracture [Unknown]
  - Fracture nonunion [Recovered/Resolved]
  - Fracture nonunion [Unknown]
  - Fracture nonunion [Recovered/Resolved]
  - Device failure [Recovered/Resolved]
  - Fall [Unknown]
  - Coronary artery disease [Not Recovered/Not Resolved]
  - Hyperlipidaemia [Unknown]
  - Blood creatinine increased [Unknown]
  - Sciatica [Unknown]
  - Coronary artery disease [Unknown]
  - Haematocrit decreased [Unknown]
  - Retinal dystrophy [Unknown]
  - Chest pain [Unknown]
  - Device breakage [Unknown]
  - Mitral valve incompetence [Unknown]
  - Hypotension [Unknown]
  - Dehydration [Unknown]
  - Adverse drug reaction [Unknown]
  - Headache [Unknown]
  - Dizziness [Unknown]
  - Chest pain [Recovered/Resolved]
  - Gait disturbance [Unknown]
  - Pain [Recovered/Resolved]
  - Hypertension [Unknown]
  - Hypercholesterolaemia [Unknown]
  - Protein urine present [Recovered/Resolved]
  - Adenomyosis [Unknown]
  - White blood cell count decreased [Unknown]
  - Rhinitis allergic [Unknown]
  - Arthritis [Not Recovered/Not Resolved]
  - Adverse drug reaction [Unknown]
  - Cataract [Unknown]
  - Supraventricular extrasystoles [Unknown]
  - Ventricular extrasystoles [Unknown]
  - Pain [Recovered/Resolved]
  - Limb deformity [Unknown]
  - Pelvic discomfort [Unknown]
  - Urinary tract pain [Unknown]
  - Dyspareunia [Unknown]
  - Vitamin D deficiency [Not Recovered/Not Resolved]
  - Heart valve incompetence [Unknown]
  - Rib fracture [Unknown]
  - Adverse drug reaction [Unknown]
  - Flank pain [Unknown]
  - Influenza [Unknown]
  - Jaundice [Unknown]
  - Hydronephrosis [Unknown]
  - Thrombocytopenia [Unknown]
  - Nephrolithiasis [Unknown]
  - Calculus ureteric [Unknown]
  - Renal cyst [Unknown]
  - Upper respiratory tract infection [Unknown]
  - Pyrexia [Unknown]
  - Pain in jaw [Recovered/Resolved]
  - Pain in extremity [Unknown]
  - Arthralgia [Unknown]
  - Headache [Recovered/Resolved]
  - Gastric ulcer [Unknown]
  - Pain in extremity [Recovered/Resolved]
  - Back pain [Unknown]
  - Rash [Not Recovered/Not Resolved]
  - Arthralgia [Recovered/Resolved]
  - Rash [Unknown]
  - Headache [Unknown]
  - Gastrooesophageal reflux disease [Unknown]
  - Abdominal pain lower [Unknown]
  - Nausea [Unknown]
